FAERS Safety Report 6489995-2 (Version None)
Quarter: 2009Q4

REPORT INFORMATION
  Report Type: 
  Country: None (occurrence: None)
  Receive Date: 20091211
  Receipt Date: 20091202
  Transmission Date: 20100525
  Serious: Yes (Hospitalization, Other)
  Sender: FDA-Public Use
  Company Number: BE-JNJFOC-20091200639

PATIENT
  Age: 46 Year
  Sex: Male

DRUGS (1)
  1. REMICADE [Suspect]
     Indication: ANKYLOSING SPONDYLITIS
     Dosage: 5.5 PLUS YEARS (FREQUENCY UNSPECIFIED)
     Route: 042
     Dates: start: 20040331, end: 20091009

REACTIONS (1)
  - DISSEMINATED TUBERCULOSIS [None]
